FAERS Safety Report 9344121 (Version 1)
Quarter: 2013Q2

REPORT INFORMATION
  Report Type: Report from Study
  Country: US (occurrence: US)
  Receive Date: 20130612
  Receipt Date: 20130612
  Transmission Date: 20140414
  Serious: No
  Sender: FDA-Public Use
  Company Number: US-009507513-1306USA005067

PATIENT
  Age: 26 Year
  Sex: Female
  Weight: 79.82 kg

DRUGS (1)
  1. IMPLANON [Suspect]
     Dosage: UNK
     Route: 059
     Dates: start: 201006, end: 20130611

REACTIONS (1)
  - Medical device removal [Unknown]
